FAERS Safety Report 6408437-6 (Version None)
Quarter: 2009Q4

REPORT INFORMATION
  Report Type: 
  Country: None (occurrence: None)
  Receive Date: 20091021
  Receipt Date: 20091015
  Transmission Date: 20100525
  Serious: Yes (Hospitalization)
  Sender: FDA-Public Use
  Company Number: CA-BAYER-200936536NA

PATIENT
  Age: 14 Year
  Sex: Female
  Weight: 53 kg

DRUGS (6)
  1. YASMIN [Suspect]
     Indication: DRUG USE FOR UNKNOWN INDICATION
     Route: 065
  2. CETIRIZINE [Concomitant]
     Route: 048
  3. FLUOXETINE [Concomitant]
     Route: 048
  4. MINOCIN [Concomitant]
     Route: 048
  5. MULTI-VITAMINS [Concomitant]
     Route: 065
  6. RANITIDINE [Concomitant]
     Route: 048

REACTIONS (4)
  - ANXIETY [None]
  - OBSESSIVE-COMPULSIVE DISORDER [None]
  - PHOBIA [None]
  - SELF-INJURIOUS IDEATION [None]
